FAERS Safety Report 6012426-3 (Version None)
Quarter: 2008Q4

REPORT INFORMATION
  Report Type: 
  Country: None (occurrence: None)
  Receive Date: 20081218
  Receipt Date: 20081210
  Transmission Date: 20090506
  Serious: Yes (Hospitalization, Other)
  Sender: FDA-Public Use
  Company Number: US-ELI_LILLY_AND_COMPANY-US200811004597

PATIENT
  Sex: Female

DRUGS (10)
  1. FORTEO [Suspect]
     Dosage: UNK, DAILY (1/D)
     Route: 058
     Dates: start: 20080201
  2. DARVOCET-N 100 [Concomitant]
     Dosage: UNK, 2/D
  3. DETROL [Concomitant]
     Dosage: 4 MG, EACH EVENING
  4. NORTRIPTYLINE HCL [Concomitant]
     Dosage: 50 MG, EACH EVENING
  5. MIRAPEX [Concomitant]
     Dosage: 0.25 MG, EACH EVENING
  6. BENADRYL [Concomitant]
     Dosage: 25 MG, EACH EVENING
  7. LYRICA [Concomitant]
     Dosage: 25 MG, 3/D
  8. MULTI-VITAMIN [Concomitant]
  9. GLUCOSAMINE W/CHONDROITIN [Concomitant]
  10. CALCIUM WITH VITAMIN D [Concomitant]

REACTIONS (3)
  - ANAEMIA [None]
  - GASTROINTESTINAL HAEMORRHAGE [None]
  - GASTROOESOPHAGEAL REFLUX DISEASE [None]
